FAERS Safety Report 5807998-5 (Version None)
Quarter: 2008Q3

REPORT INFORMATION
  Report Type: 
  Country: None (occurrence: None)
  Receive Date: 20080711
  Receipt Date: 20080630
  Transmission Date: 20090109
  Serious: Yes (Other)
  Sender: FDA-Public Use
  Company Number: US-PFIZER INC-2008048283

PATIENT
  Sex: Male
  Weight: 83 kg

DRUGS (2)
  1. LYRICA [Suspect]
     Route: 048
     Dates: start: 20080116, end: 20080501
  2. ANTIHYPERTENSIVES [Concomitant]

REACTIONS (4)
  - OPTIC NERVE DISORDER [None]
  - SCOTOMA [None]
  - VISUAL ACUITY REDUCED [None]
  - VISUAL IMPAIRMENT [None]
